FAERS Safety Report 6515444-1 (Version None)
Quarter: 2009Q4

REPORT INFORMATION
  Report Type: 
  Country: None (occurrence: None)
  Receive Date: 20091223
  Receipt Date: 20091217
  Transmission Date: 20100525
  Serious: Yes (Death)
  Sender: FDA-Public Use
  Company Number: US-BRISTOL-MYERS SQUIBB COMPANY-14900807

PATIENT
  Sex: Male

DRUGS (2)
  1. COUMADIN [Suspect]
  2. AVALIDE [Suspect]

REACTIONS (1)
  - EMBOLISM [None]
